FAERS Safety Report 8926492 (Version 1)
Quarter: 2012Q4

REPORT INFORMATION
  Report Type: 
  Country: BR (occurrence: BR)
  Receive Date: 20121127
  Receipt Date: 20121127
  Transmission Date: 20130627
  Serious: Yes (Other)
  Sender: FDA-Public Use
  Company Number: PHHY2012BR099034

PATIENT
  Sex: Female
  Weight: 50 kg

DRUGS (4)
  1. EXELON PATCH [Suspect]
     Indication: DEMENTIA ALZHEIMER^S TYPE
     Dosage: 4.5 mg, / 24 Hrs (1 adhesive daily)
     Route: 062
  2. EXELON PATCH [Suspect]
     Dosage: 9.5 mg, / 24 Hrs (1 adhesive daily)
     Route: 062
  3. EXELON PATCH [Suspect]
     Dosage: 9.5 mg/ 24 hrs, half adhesive daily
     Dates: start: 20121012, end: 20121014
  4. EXELON PATCH [Suspect]
     Dosage: 4.5 mg, / 24 Hrs (1 adhesive daily)
     Route: 062
     Dates: start: 20121029

REACTIONS (6)
  - Hypophagia [Recovered/Resolved]
  - Nausea [Recovered/Resolved]
  - Headache [Recovered/Resolved]
  - Dizziness [Recovered/Resolved]
  - Malaise [Recovered/Resolved]
  - Wrong technique in drug usage process [Recovered/Resolved]
